FAERS Safety Report 21979812 (Version 1)
Quarter: 2023Q1

REPORT INFORMATION
  Report Type: Spontaneous
  Country: US (occurrence: None)
  Receive Date: 20230208
  Receipt Date: 20230208
  Transmission Date: 20230418
  Serious: Yes (Hospitalization)
  Sender: FDA-Public Use
  Company Number: None

PATIENT
  Sex: Female

DRUGS (1)
  1. MAYZENT [Suspect]
     Active Substance: SIPONIMOD
     Dosage: FREQUENCY : DAILY;?
     Route: 048

REACTIONS (5)
  - Thrombosis [None]
  - Pulmonary embolism [None]
  - Urinary tract infection [None]
  - Sepsis [None]
  - Therapy interrupted [None]
